FAERS Safety Report 16660477 (Version 2)
Quarter: 2020Q4

REPORT INFORMATION
  Report Type: Spontaneous
  Country: US (occurrence: US)
  Receive Date: 20190802
  Receipt Date: 20201124
  Transmission Date: 20210113
  Serious: Yes (Other)
  Sender: FDA-Public Use
  Company Number: US-JNJFOC-20190728355

PATIENT
  Age: 43 Year
  Sex: Female

DRUGS (1)
  1. STELARA [Suspect]
     Active Substance: USTEKINUMAB
     Indication: CROHN^S DISEASE
     Route: 058
     Dates: start: 201903

REACTIONS (5)
  - Aggression [Unknown]
  - Loss of consciousness [Unknown]
  - Weight decreased [Unknown]
  - Abnormal behaviour [Unknown]
  - Memory impairment [Unknown]

NARRATIVE: CASE EVENT DATE: 201907
